FAERS Safety Report 10246293 (Version 1)
Quarter: 2014Q2

REPORT INFORMATION
  Report Type: Spontaneous
  Country: NL (occurrence: NL)
  Receive Date: 20140619
  Receipt Date: 20140619
  Transmission Date: 20141212
  Serious: Yes (Death)
  Sender: FDA-Public Use
  Company Number: NL-AMGEN-NLDSP2014045437

PATIENT
  Age: 51 Year
  Sex: Female

DRUGS (2)
  1. NEULASTA [Suspect]
     Indication: PROPHYLAXIS
     Dosage: 10 MG/ML, INJVLST WWSP 0.6 ML, EVERY THREE WEEKS
     Route: 058
     Dates: start: 20120504, end: 20140613
  2. XGEVA [Suspect]
     Indication: PROPHYLAXIS
     Dosage: 70 MG/ML, 120 INJVLST FLACON 1.7ML, Q3WK
     Route: 058
     Dates: start: 20130513, end: 20140613

REACTIONS (1)
  - Death [Fatal]
